FAERS Safety Report 5344361-8 (Version None)
Quarter: 2007Q2

REPORT INFORMATION
  Report Type: 
  Country: None (occurrence: None)
  Receive Date: 20070604
  Receipt Date: 20070524
  Transmission Date: 20071010
  Serious: Yes (Death, Hospitalization, Other)
  Sender: FDA-Public Use
  Company Number: SE-GENENTECH-237399

PATIENT
  Sex: Female

DRUGS (7)
  1. MABTHERA [Suspect]
     Indication: VASCULITIS
     Dosage: 1000 MG, X2
     Dates: start: 20060301
  2. MABTHERA [Suspect]
     Dosage: 1000 MG, X2
     Dates: start: 20061026, end: 20061109
  3. OPIOID ANALGESICS NOS [Concomitant]
     Indication: PAIN
  4. PREDNISOLONE [Concomitant]
     Indication: VASCULITIS
     Dosage: 5 MG, QD
     Dates: start: 20010101
  5. AZATHIOPRINE [Concomitant]
     Indication: VASCULITIS
     Dosage: 50 MG, BID
     Dates: start: 20050101, end: 20070131
  6. WARFARIN SODIUM [Concomitant]
     Indication: VASCULITIS
     Dosage: 2.5 MG, UNK
     Dates: start: 20010101
  7. HYDROCORTISONE [Concomitant]
     Indication: PREMEDICATION
     Dosage: 100 MG, UNK
     Route: 042

REACTIONS (4)
  - COGNITIVE DISORDER [None]
  - DIPLOPIA [None]
  - DISEASE PROGRESSION [None]
  - PROGRESSIVE MULTIFOCAL LEUKOENCEPHALOPATHY [None]
